FAERS Safety Report 7996451-9 (Version None)
Quarter: 2011Q4

REPORT INFORMATION
  Report Type: 
  Country: None (occurrence: None)
  Receive Date: 20111220
  Receipt Date: 20060918
  Transmission Date: 20120403
  Serious: Yes (Other)
  Sender: FDA-Public Use
  Company Number: PHHY2006MX03323

PATIENT
  Age: 93 Year
  Sex: Female

DRUGS (4)
  1. ACETYLSALICYLIC ACID [Concomitant]
  2. ISOSORBIDE DINITRATE [Concomitant]
  3. PROPRANOLOL [Concomitant]
     Indication: HYPERTENSION
     Dosage: 1 DF, UNK
  4. DIOVAN [Suspect]
     Indication: HYPERTENSION
     Dosage: 0.5 DF, 1/2 TABLET (160 MG) PER DAY
     Dates: start: 20050601, end: 20060701

REACTIONS (2)
  - HYPOTENSION [None]
  - ANGINA PECTORIS [None]
